FAERS Safety Report 6287520-2 (Version None)
Quarter: 2009Q3

REPORT INFORMATION
  Report Type: 
  Country: None (occurrence: None)
  Receive Date: 20090728
  Receipt Date: 20090721
  Transmission Date: 20100115
  Serious: Yes (Death)
  Sender: FDA-Public Use
  Company Number: US-GILEAD-2009-0023242

PATIENT
  Sex: Female
  Weight: 59.928 kg

DRUGS (18)
  1. LETAIRIS [Suspect]
     Indication: PULMONARY ARTERIAL HYPERTENSION
     Route: 048
     Dates: start: 20081024
  2. REVATIO [Concomitant]
  3. VENTAVIS [Concomitant]
  4. COUMADIN [Concomitant]
  5. OXYGEN [Concomitant]
  6. LASIX [Concomitant]
  7. LISINOPRIL [Concomitant]
  8. ALBUTEROL [Concomitant]
  9. LIPITOR [Concomitant]
  10. TRICOR [Concomitant]
  11. METFORMIN HCL [Concomitant]
  12. PRILOSEC [Concomitant]
  13. TYLENOL W/ CODEINE #3 [Concomitant]
  14. CLARITIN-D [Concomitant]
  15. ALENDRONATE SODIUM [Concomitant]
  16. VALIUM [Concomitant]
  17. LEVOTHYROXINE SODIUM [Concomitant]
  18. ARTHROTEC [Concomitant]

REACTIONS (1)
  - DEATH [None]
